FAERS Safety Report 15688397 (Version 4)
Quarter: 2019Q1

REPORT INFORMATION
  Report Type: Report from Study
  Country: None (occurrence: CH)
  Receive Date: 20181205
  Receipt Date: 20190304
  Transmission Date: 20190417
  Serious: Yes (Hospitalization)
  Sender: FDA-Public Use
  Company Number: CH-ABBVIE-17K-151-2099033-00

PATIENT
  Sex: Female
  Weight: 54 kg

DRUGS (8)
  1. TEMESTA [LORAZEPAM] [Concomitant]
     Active Substance: LORAZEPAM
     Dosage: BEFORE BED
     Route: 065
  2. DUODOPA [Suspect]
     Active Substance: CARBIDOPA\LEVODOPA
     Dosage: MD 12ML, CR 3.9ML/H, ED 3.0ML, 16H THERAPY
     Route: 050
     Dates: start: 20160511, end: 20171205
  3. LEPONEX [Concomitant]
     Active Substance: CLOZAPINE
     Indication: PRODUCT USED FOR UNKNOWN INDICATION
     Route: 065
  4. TEMESTA [LORAZEPAM] [Concomitant]
     Active Substance: LORAZEPAM
     Indication: PRODUCT USED FOR UNKNOWN INDICATION
     Dosage: 12PM
     Route: 065
  5. REMERON [Concomitant]
     Active Substance: MIRTAZAPINE
     Indication: PRODUCT USED FOR UNKNOWN INDICATION
     Dosage: EVENINGS
     Route: 065
  6. DUODOPA [Suspect]
     Active Substance: CARBIDOPA\LEVODOPA
     Indication: PARKINSON^S DISEASE
     Dosage: MD 12ML, CR 3.9ML/H, ED 3.0ML, 16H THERAPY
     Route: 050
     Dates: start: 20160329, end: 20160511
  7. MADOPAR [Concomitant]
     Active Substance: BENSERAZIDE HYDROCHLORIDE\LEVODOPA
     Indication: PRODUCT USED FOR UNKNOWN INDICATION
     Dosage: 11:30AM, 7PM
     Route: 065
  8. DUODOPA [Suspect]
     Active Substance: CARBIDOPA\LEVODOPA
     Dosage: MD 12ML, CR DAY 3.7ML/H, ED 3ML, 16H THERAPY
     Route: 050
     Dates: start: 20171205

REACTIONS (21)
  - Device issue [Recovered/Resolved]
  - Stoma site hypergranulation [Not Recovered/Not Resolved]
  - Hyperkinesia [Unknown]
  - Tachycardia [Unknown]
  - Device colour issue [Recovered/Resolved]
  - Fall [Unknown]
  - Anxiety [Unknown]
  - Depression [Unknown]
  - Stoma site irritation [Unknown]
  - Hyperthyroidism [Unknown]
  - Dyspepsia [Unknown]
  - Facial bones fracture [Unknown]
  - Stoma site discharge [Unknown]
  - Osteoarthritis [Not Recovered/Not Resolved]
  - Gastrooesophageal reflux disease [Unknown]
  - Toxic nodular goitre [Recovered/Resolved]
  - Gait disturbance [Unknown]
  - Device dislocation [Recovered/Resolved]
  - Device expulsion [Recovered/Resolved]
  - Device damage [Recovered/Resolved]
  - Hyperhidrosis [Unknown]
